FAERS Safety Report 24119416 (Version 1)
Quarter: 2024Q3

REPORT INFORMATION
  Report Type: Spontaneous
  Country: GB (occurrence: GB)
  Receive Date: 20240722
  Receipt Date: 20240722
  Transmission Date: 20241017
  Serious: Yes (Other)
  Sender: TORRENT
  Company Number: None

PATIENT
  Age: 76 Year
  Sex: Male
  Weight: 113 kg

DRUGS (4)
  1. MONTELUKAST [Suspect]
     Active Substance: MONTELUKAST SODIUM
     Indication: Asthma
     Dosage: ONE TO BE TAKEN AT NIGHT - TO HELP CONTROL ASTHMA SYMPTOMS
     Route: 065
     Dates: start: 20240620
  2. FEXOFENADINE [Concomitant]
     Active Substance: FEXOFENADINE HYDROCHLORIDE
     Indication: Product used for unknown indication
     Dosage: ONE TO BE TAKEN EACH DAY
     Route: 065
     Dates: start: 20240515, end: 20240629
  3. MONTELUKAST [Concomitant]
     Active Substance: MONTELUKAST SODIUM
     Indication: Asthma
     Dosage: ONE TO BE TAKEN AT NIGHT
     Route: 065
     Dates: start: 20240620
  4. ACETAMINOPHEN [Concomitant]
     Active Substance: ACETAMINOPHEN
     Indication: Product used for unknown indication
     Dosage: TWO TO BE TAKEN EVERY 4-6 HOURS UP TO FOUR TIMES A DAY
     Route: 065
     Dates: start: 20240426, end: 20240605

REACTIONS (1)
  - Mixed anxiety and depressive disorder [Recovered/Resolved]

NARRATIVE: CASE EVENT DATE: 20240627
